FAERS Safety Report 25351603 (Version 2)
Quarter: 2025Q3

REPORT INFORMATION
  Report Type: Spontaneous
  Country: EU (occurrence: EU)
  Receive Date: 20250523
  Receipt Date: 20250704
  Transmission Date: 20251021
  Serious: Yes (Hospitalization)
  Sender: MERCK SHARP & DOHME LLC
  Company Number: EU-009507513-2287898

PATIENT
  Age: 51 Year
  Sex: Male

DRUGS (12)
  1. DORAVIRINE [Suspect]
     Active Substance: DORAVIRINE
     Indication: HIV infection
     Route: 048
     Dates: start: 202309
  2. OLANZAPINE [Concomitant]
     Active Substance: OLANZAPINE
     Dosage: STRENGTH: 10MG
     Route: 048
  3. LORAZEPAM [Concomitant]
     Active Substance: LORAZEPAM
     Dosage: STRENGTH: 1MG
     Route: 048
  4. QUETIAPINE [Concomitant]
     Active Substance: QUETIAPINE
     Dosage: STRENGTH: 200MG
     Route: 048
  5. LEVETIRACETAM [Concomitant]
     Active Substance: LEVETIRACETAM
     Dosage: STRENGTH: 500MG
     Route: 048
  6. CARIPRAZINE [Concomitant]
     Active Substance: CARIPRAZINE
     Dosage: DOSE: 4.5 + 1.5 MG
  7. PALIPERIDONE [Concomitant]
     Active Substance: PALIPERIDONE
     Dosage: STRENGTH: 150 MG
  8. TRAZODONE [Concomitant]
     Active Substance: TRAZODONE HYDROCHLORIDE
     Dosage: STRENGTH: 100MG
     Route: 048
  9. AMISULPRIDE [Concomitant]
     Active Substance: AMISULPRIDE
     Dosage: STRENGTH: 200MG
     Route: 048
  10. OMEPRAZOLE [Concomitant]
     Active Substance: OMEPRAZOLE
     Route: 048
  11. RAMIPRIL [Concomitant]
     Active Substance: RAMIPRIL
     Dosage: STRENGTH: 5MG
     Route: 048
  12. EMTRICITABINE\TENOFOVIR ALAFENAMIDE FUMARATE [Suspect]
     Active Substance: EMTRICITABINE\TENOFOVIR ALAFENAMIDE FUMARATE

REACTIONS (4)
  - Schizophrenia [Unknown]
  - Treatment noncompliance [Unknown]
  - Lipids abnormal [Unknown]
  - Weight decreased [Recovering/Resolving]

NARRATIVE: CASE EVENT DATE: 20230101
